FAERS Safety Report 21914857 (Version 1)
Quarter: 2023Q1

REPORT INFORMATION
  Report Type: Spontaneous
  Country: US (occurrence: US)
  Receive Date: 20230126
  Receipt Date: 20230126
  Transmission Date: 20230417
  Serious: Yes (Other)
  Sender: FDA-Public Use
  Company Number: US-SPECGX-T202300469

PATIENT
  Sex: Female

DRUGS (6)
  1. NALTREXONE [Suspect]
     Active Substance: NALTREXONE
     Indication: Fibromyalgia
     Dosage: UNK (BREAKING THE TABLETS 50 MG IN TO 4 PIECES AND MIXING WITH 50 ML OF WATER TO ONE PIECE)
     Route: 065
     Dates: start: 20220724
  2. NALTREXONE [Suspect]
     Active Substance: NALTREXONE
     Indication: Neuropathy peripheral
     Dosage: 0.5 MILLILITER
     Route: 065
     Dates: start: 20220724
  3. NALTREXONE [Suspect]
     Active Substance: NALTREXONE
     Dosage: UNK, (GRADUALLY INCREASED THE QUANTITY)
     Route: 048
     Dates: start: 2022
  4. NALTREXONE [Suspect]
     Active Substance: NALTREXONE
     Dosage: 1 MILLILITER
     Route: 048
     Dates: start: 202208
  5. NALTREXONE [Suspect]
     Active Substance: NALTREXONE
     Dosage: 1.5 MILLILITER
     Route: 048
  6. NALTREXONE [Suspect]
     Active Substance: NALTREXONE
     Dosage: 1 MILLILITER
     Route: 048

REACTIONS (9)
  - Neuropathy peripheral [Not Recovered/Not Resolved]
  - Condition aggravated [Not Recovered/Not Resolved]
  - Fibromyalgia [Not Recovered/Not Resolved]
  - Burning sensation [Not Recovered/Not Resolved]
  - Pain [Not Recovered/Not Resolved]
  - Arthralgia [Not Recovered/Not Resolved]
  - Myalgia [Not Recovered/Not Resolved]
  - Wrong technique in product usage process [Unknown]
  - Product use in unapproved indication [Unknown]

NARRATIVE: CASE EVENT DATE: 20220724
